FAERS Safety Report 10228323 (Version 1)
Quarter: 2014Q2

REPORT INFORMATION
  Report Type: Spontaneous
  Country: FR (occurrence: FR)
  Receive Date: 20140610
  Receipt Date: 20140610
  Transmission Date: 20141212
  Serious: Yes (Hospitalization)
  Sender: FDA-Public Use
  Company Number: FR-ASTRAZENECA-2014SE39833

PATIENT
  Age: 31328 Day
  Sex: Male

DRUGS (9)
  1. HYTACAND [Suspect]
     Dosage: 8/12.5 MG/D
     Route: 048
     Dates: end: 201402
  2. NEBIVOLOL [Concomitant]
     Route: 048
  3. INEGY [Concomitant]
     Dosage: 10/40 MG/DAY
     Route: 048
  4. ALLOPURINOL [Concomitant]
     Route: 048
  5. TAMSULOSINE [Concomitant]
     Route: 048
  6. ZOLPIDEM [Concomitant]
     Route: 048
  7. LAMALINE [Concomitant]
     Route: 048
  8. NEORECORMON [Concomitant]
     Route: 058
  9. DICLOFENAC [Concomitant]

REACTIONS (3)
  - General physical health deterioration [Recovered/Resolved]
  - Renal failure acute [Recovered/Resolved]
  - Medication error [Recovered/Resolved]
